FAERS Safety Report 22400056 (Version 1)
Quarter: 2023Q2

REPORT INFORMATION
  Report Type: Spontaneous
  Country: KR (occurrence: KR)
  Receive Date: 20230602
  Receipt Date: 20230602
  Transmission Date: 20230722
  Serious: Yes (Hospitalization)
  Sender: FDA-Public Use
  Company Number: KR-ORGANON-O2305KOR003073

PATIENT
  Age: 56 Year
  Sex: Male
  Weight: 67 kg

DRUGS (8)
  1. COZAAR [Suspect]
     Active Substance: LOSARTAN POTASSIUM
     Indication: Arteriosclerosis coronary artery
     Dosage: 0.5 FORMULATION, QD
     Route: 048
     Dates: start: 20180723
  2. CLOPIDOGREL BISULFATE [Suspect]
     Active Substance: CLOPIDOGREL BISULFATE
     Dosage: 600 MILLIGRAM, QD
     Dates: start: 20180722
  3. ASPIRIN [Suspect]
     Active Substance: ASPIRIN
     Dosage: 300 MILLIGRAM
     Dates: start: 20180722
  4. ASPIRIN [Suspect]
     Active Substance: ASPIRIN
     Dosage: 100 MILLIGRAM
     Dates: start: 20180723
  5. MORPHINE SULFATE [Concomitant]
     Active Substance: MORPHINE SULFATE
     Indication: Arteriosclerosis coronary artery
     Dosage: 1 FORMULATION, QD, ROUTE REPORTED AS VEIN
     Route: 042
     Dates: start: 20180722, end: 20180722
  6. NITROGLYCERIN [Concomitant]
     Active Substance: NITROGLYCERIN
     Indication: Arteriosclerosis coronary artery
     Dosage: 1 FORMULATION, QD
     Route: 048
     Dates: start: 20180722, end: 20180722
  7. ROSUVASTATIN CALCIUM [Concomitant]
     Active Substance: ROSUVASTATIN CALCIUM
     Indication: Arteriosclerosis coronary artery
     Dosage: 1 FORMULATION, QD
     Route: 048
     Dates: start: 20180722
  8. BISOPROLOL FUMARATE [Concomitant]
     Active Substance: BISOPROLOL FUMARATE
     Indication: Arteriosclerosis coronary artery
     Dosage: 1 FORMULATION, QD
     Route: 048
     Dates: start: 20180723

REACTIONS (1)
  - Diverticulitis [Recovered/Resolved]

NARRATIVE: CASE EVENT DATE: 20181019
